FAERS Safety Report 8542581-2 (Version None)
Quarter: 2012Q3

REPORT INFORMATION
  Report Type: 
  Country: None (occurrence: None)
  Receive Date: 20120726
  Receipt Date: 20120718
  Transmission Date: 20120928
  Serious: Yes (Hospitalization, Other)
  Sender: FDA-Public Use
  Company Number: JP-TEVA-2011003625

PATIENT
  Sex: Female
  Weight: 58 kg

DRUGS (10)
  1. IBUPROFEN [Concomitant]
     Dates: start: 20110210, end: 20110614
  2. FLUCONAZOLE [Concomitant]
  3. RABEPRAZOLE SODIUM [Concomitant]
  4. ENTECAVIR [Concomitant]
  5. RITUXIMAB [Concomitant]
     Dates: start: 20110210, end: 20110614
  6. BETAMETHASONE [Concomitant]
     Dates: start: 20110210, end: 20110614
  7. BENDAMUSTINE HYDROCHLORIDE [Suspect]
     Dosage: 60 MG/M2;
     Route: 042
     Dates: start: 20110518
  8. BENDAMUSTINE HYDROCHLORIDE [Suspect]
     Indication: B-CELL LYMPHOMA
     Dosage: 90 MG/M2;
     Route: 042
     Dates: start: 20110211, end: 20110420
  9. SULFAMETHOXAZOLE [Concomitant]
  10. POLAPREZINC [Concomitant]

REACTIONS (6)
  - HEADACHE [None]
  - VASCULITIS [None]
  - WHITE BLOOD CELL COUNT DECREASED [None]
  - ENTEROCOLITIS [None]
  - NEUTROPHIL COUNT DECREASED [None]
  - LYMPHOCYTE COUNT DECREASED [None]
